FAERS Safety Report 12177152 (Version 5)
Quarter: 2016Q3

REPORT INFORMATION
  Report Type: Report from Study
  Country: JP (occurrence: JP)
  Receive Date: 20160315
  Receipt Date: 20160801
  Transmission Date: 20161109
  Serious: Yes (Hospitalization)
  Sender: FDA-Public Use
  Company Number: JP-BRISTOL-MYERS SQUIBB COMPANY-BMS-2016-017265

PATIENT
  Age: 45 Year
  Sex: Female
  Weight: 74.8 kg

DRUGS (5)
  1. IPILIMUMAB [Suspect]
     Active Substance: IPILIMUMAB
     Indication: MALIGNANT MELANOMA
     Dosage: 210 MG, UNK
     Route: 041
     Dates: start: 20151201
  2. IPILIMUMAB [Suspect]
     Active Substance: IPILIMUMAB
     Dosage: 210 MG, UNK
     Route: 041
     Dates: start: 20150114
  3. IPILIMUMAB [Suspect]
     Active Substance: IPILIMUMAB
     Dosage: 210 MG, UNK
     Route: 041
     Dates: start: 20151224
  4. IPILIMUMAB [Suspect]
     Active Substance: IPILIMUMAB
     Dosage: 210 MG, UNK
     Route: 041
     Dates: start: 20160202
  5. IPILIMUMAB [Suspect]
     Active Substance: IPILIMUMAB
     Dosage: 3 MG/KG, UNK
     Route: 041
     Dates: start: 20160204

REACTIONS (5)
  - Dyspnoea [Recovered/Resolved]
  - Lymphocytic hypophysitis [Recovering/Resolving]
  - Diarrhoea [Recovered/Resolved]
  - Thyroiditis [Recovering/Resolving]
  - Pulmonary sarcoidosis [Unknown]

NARRATIVE: CASE EVENT DATE: 20160204
